FAERS Safety Report 6690005-2 (Version None)
Quarter: 2010Q2

REPORT INFORMATION
  Report Type: 
  Country: None (occurrence: None)
  Receive Date: 20100421
  Receipt Date: 20100408
  Transmission Date: 20101027
  Serious: Yes (Hospitalization, Other)
  Sender: FDA-Public Use
  Company Number: PHHY2010FR21943

PATIENT
  Age: 11 Year
  Sex: Male

DRUGS (5)
  1. MINI-SINTROM [Suspect]
     Dosage: 1 MG, UNK
     Dates: start: 20030101
  2. TEGRETOL [Suspect]
     Dosage: 200 MG, UNK
     Dates: start: 20100215, end: 20100312
  3. TEGRETOL [Suspect]
     Dosage: 300 MG, BID
     Dates: start: 20100115, end: 20100312
  4. CLONIDINE HCL [Suspect]
     Dosage: 0.15 MG, UNK
     Dates: start: 20030101
  5. HYDROXYZINE [Suspect]
     Dosage: 25 MG, UNK
     Dates: start: 20040101

REACTIONS (13)
  - ANKLE FRACTURE [None]
  - CELL DEATH [None]
  - DIARRHOEA [None]
  - DISSEMINATED INTRAVASCULAR COAGULATION [None]
  - ENCEPHALITIS [None]
  - HEPATIC FAILURE [None]
  - HYPERTHERMIA MALIGNANT [None]
  - HYPOGLYCAEMIA [None]
  - INTERNATIONAL NORMALISED RATIO INCREASED [None]
  - PYREXIA [None]
  - RENAL FAILURE [None]
  - RHABDOMYOLYSIS [None]
  - STATUS EPILEPTICUS [None]
